FAERS Safety Report 13793545 (Version 1)
Quarter: 2017Q3

REPORT INFORMATION
  Report Type: Report from Study
  Country: JP (occurrence: JP)
  Receive Date: 20170726
  Receipt Date: 20170726
  Transmission Date: 20171127
  Serious: Yes (Hospitalization)
  Sender: FDA-Public Use
  Company Number: JP-JNJFOC-20170718442

PATIENT
  Age: 60 Year
  Sex: Female
  Weight: 52 kg

DRUGS (4)
  1. YONDELIS [Suspect]
     Active Substance: TRABECTEDIN
     Indication: METASTASES TO PELVIS
     Dosage: A 24-HOUR INFUSION (CYCLE 1 TO CYCLE 6)
     Route: 042
     Dates: start: 20160229, end: 20160719
  2. DEXAMETHASONE. [Concomitant]
     Active Substance: DEXAMETHASONE
     Indication: PREMEDICATION
     Route: 065
     Dates: start: 20160229
  3. YONDELIS [Suspect]
     Active Substance: TRABECTEDIN
     Indication: PLEOMORPHIC LIPOSARCOMA
     Dosage: A 24-HOUR INFUSION (CYCLE 1 TO CYCLE 6)
     Route: 042
     Dates: start: 20160229, end: 20160719
  4. YONDELIS [Suspect]
     Active Substance: TRABECTEDIN
     Indication: METASTASES TO ABDOMINAL CAVITY
     Dosage: A 24-HOUR INFUSION (CYCLE 1 TO CYCLE 6)
     Route: 042
     Dates: start: 20160229, end: 20160719

REACTIONS (1)
  - Bacteraemia [Unknown]

NARRATIVE: CASE EVENT DATE: 20160725
